FAERS Safety Report 23431660 (Version 4)
Quarter: 2024Q1

REPORT INFORMATION
  Report Type: Spontaneous
  Country: BR (occurrence: None)
  Receive Date: 20240123
  Receipt Date: 20240305
  Transmission Date: 20240410
  Serious: Yes (Hospitalization)
  Sender: FDA-Public Use
  Company Number: 2024A014869

PATIENT
  Age: 26776 Day
  Sex: Female
  Weight: 80 kg

DRUGS (3)
  1. TEZSPIRE [Suspect]
     Active Substance: TEZEPELUMAB-EKKO
     Indication: Asthma
     Dosage: ONCE
     Route: 058
     Dates: start: 20231205, end: 20231205
  2. SYMBICORT [Suspect]
     Active Substance: BUDESONIDE\FORMOTEROL FUMARATE DIHYDRATE
     Dosage: 2-1-2 AND 2, UNKNOWN UNKNOWN
     Route: 055
     Dates: start: 20220522
  3. SPIRIVA [Concomitant]
     Active Substance: TIOTROPIUM BROMIDE MONOHYDRATE
     Dosage: 2-1-2 AND 2
     Route: 055
     Dates: start: 20220522

REACTIONS (3)
  - Bronchospasm [Recovered/Resolved]
  - Fall [Unknown]
  - Chest pain [Recovered/Resolved]

NARRATIVE: CASE EVENT DATE: 20231210
